FAERS Safety Report 7585466-0 (Version None)
Quarter: 2011Q3

REPORT INFORMATION
  Report Type: 
  Country: None (occurrence: None)
  Receive Date: 20110701
  Receipt Date: 20110620
  Transmission Date: 20111222
  Serious: Yes (Hospitalization, Other)
  Sender: FDA-Public Use
  Company Number: US-BAYER-201041687NA

PATIENT
  Age: 34 Year
  Sex: Female
  Weight: 67.12 kg

DRUGS (2)
  1. DROSPIRENONE AND ETHINYL ESTRADIOL [Suspect]
     Dosage: UNK
     Dates: start: 20080909, end: 20090713
  2. TOPROL-XL [Concomitant]
     Indication: BLOOD PRESSURE INCREASED
     Dosage: DAILY DOSE 25 MG

REACTIONS (6)
  - CEREBROVASCULAR ACCIDENT [None]
  - HYPOAESTHESIA ORAL [None]
  - EYELID PTOSIS [None]
  - MUSCULAR WEAKNESS [None]
  - BLOOD PRESSURE FLUCTUATION [None]
  - HEADACHE [None]
